FAERS Safety Report 4916245-8 (Version None)
Quarter: 2006Q1

REPORT INFORMATION
  Report Type: 
  Country: None (occurrence: None)
  Receive Date: 20060217
  Receipt Date: 20050930
  Transmission Date: 20060701
  Serious: Yes (Hospitalization, Other)
  Sender: FDA-Public Use
  Company Number: PR-MERCK-0510USA01607

PATIENT
  Age: 45 Year
  Sex: Female
  Weight: 56 kg

DRUGS (3)
  1. VIOXX [Suspect]
     Indication: PAIN
     Route: 048
     Dates: start: 20010101, end: 20040101
  2. AMBIEN [Concomitant]
     Route: 065
     Dates: start: 20000101
  3. PAXIL [Concomitant]
     Route: 065
     Dates: start: 20000101

REACTIONS (10)
  - ANGINA PECTORIS [None]
  - APPENDIX DISORDER [None]
  - ARRHYTHMIA [None]
  - ARTHROPATHY [None]
  - BREAST CYST [None]
  - CEREBROVASCULAR ACCIDENT [None]
  - MYOCARDIAL INFARCTION [None]
  - ORGAN FAILURE [None]
  - PULMONARY EMBOLISM [None]
  - THROMBOSIS [None]
